FAERS Safety Report 5314461-7 (Version None)
Quarter: 2007Q2

REPORT INFORMATION
  Report Type: 
  Country: None (occurrence: None)
  Receive Date: 20070502
  Receipt Date: 20070430
  Transmission Date: 20071010
  Serious: Yes (Death, Hospitalization, Other)
  Sender: FDA-Public Use
  Company Number: US-BAYER-200613925BWH

PATIENT
  Age: 86 Year
  Sex: Male

DRUGS (1)
  1. NEXAVAR [Suspect]
     Indication: PERITONEAL SARCOMA
     Dosage: TOTAL DAILY DOSE: 800 MG  UNIT DOSE: 200 MG
     Route: 048
     Dates: start: 20060510, end: 20060522

REACTIONS (11)
  - ANOREXIA [None]
  - ASTHENIA [None]
  - BLISTER [None]
  - DEHYDRATION [None]
  - DISEASE PROGRESSION [None]
  - FATIGUE [None]
  - FEELING ABNORMAL [None]
  - RASH GENERALISED [None]
  - RENAL FAILURE [None]
  - SARCOMA [None]
  - STOMATITIS [None]
